FAERS Safety Report 16669555 (Version 2)
Quarter: 2019Q3

REPORT INFORMATION
  Report Type: Report from Study
  Country: ZA (occurrence: ZA)
  Receive Date: 20190805
  Receipt Date: 20190930
  Transmission Date: 20191004
  Serious: Yes (Other)
  Sender: FDA-Public Use
  Company Number: ZA-TAKEDA-2019TUS046444

PATIENT
  Age: 31 Year
  Sex: Female
  Weight: 57 kg

DRUGS (6)
  1. VORTIOXETINE. [Suspect]
     Active Substance: VORTIOXETINE
     Indication: DEPRESSION
     Dosage: 5 MILLIGRAM, QD
     Route: 048
     Dates: start: 20190314
  2. TRAZODONE [Concomitant]
     Active Substance: TRAZODONE HYDROCHLORIDE
     Indication: ANXIETY
  3. VORTIOXETINE. [Suspect]
     Active Substance: VORTIOXETINE
     Dosage: 10 MILLIGRAM, QD
     Route: 048
     Dates: start: 20190411, end: 20190707
  4. ASPEN                              /00002701/ [Concomitant]
     Active Substance: ASPIRIN
     Indication: DEPRESSION
     Dosage: UNK, QD
     Route: 048
     Dates: start: 20180406
  5. TRAZODONE [Concomitant]
     Active Substance: TRAZODONE HYDROCHLORIDE
     Indication: DEPRESSION
     Dosage: 50 MILLIGRAM, QD
     Route: 048
     Dates: start: 20180406
  6. ASPEN                              /00002701/ [Concomitant]
     Active Substance: ASPIRIN
     Indication: ANXIETY

REACTIONS (1)
  - Gastric ulcer [Recovered/Resolved]
